FAERS Safety Report 18975114 (Version 2)
Quarter: 2021Q1

REPORT INFORMATION
  Report Type: Spontaneous
  Country: JP (occurrence: JP)
  Receive Date: 20210306
  Receipt Date: 20210319
  Transmission Date: 20210420
  Serious: Yes (Other)
  Sender: FDA-Public Use
  Company Number: JP-ROCHE-2781892

PATIENT
  Age: 70 Year
  Sex: Female
  Weight: 55 kg

DRUGS (8)
  1. KADCYLA [Suspect]
     Active Substance: ADO-TRASTUZUMAB EMTANSINE
     Dosage: DOSAGE IS UNCERTAIN.
     Route: 041
     Dates: start: 20200606, end: 20200606
  2. KADCYLA [Suspect]
     Active Substance: ADO-TRASTUZUMAB EMTANSINE
     Dosage: DOSAGE IS UNCERTAIN.
     Route: 041
     Dates: start: 20200626, end: 20200626
  3. ALDACTONE A [Concomitant]
     Active Substance: SPIRONOLACTONE
     Dosage: DOSAGE IS UNCERTAIN.
     Route: 048
     Dates: start: 20200417
  4. MOHRUS [Suspect]
     Active Substance: KETOPROFEN
     Indication: PRODUCT USED FOR UNKNOWN INDICATION
     Route: 061
     Dates: end: 20210219
  5. LAFUTIDINE [Suspect]
     Active Substance: LAFUTIDINE
     Indication: PRODUCT USED FOR UNKNOWN INDICATION
     Route: 048
     Dates: start: 20190419, end: 20210219
  6. KADCYLA [Suspect]
     Active Substance: ADO-TRASTUZUMAB EMTANSINE
     Indication: BREAST CANCER
     Dosage: DOSAGE IS UNCERTAIN.
     Route: 041
     Dates: start: 20200515, end: 20200515
  7. PYDOXAL [Concomitant]
     Active Substance: PYRIDOXAL
     Dosage: DOSAGE IS UNCERTAIN.
     Route: 048
     Dates: start: 20170519
  8. REBAMIPIDE [Concomitant]
     Active Substance: REBAMIPIDE
     Dosage: DOSAGE IS UNCERTAIN.
     Route: 048
     Dates: start: 20170519

REACTIONS (1)
  - Renal impairment [Not Recovered/Not Resolved]

NARRATIVE: CASE EVENT DATE: 20200522
